FAERS Safety Report 9883613 (Version 1)
Quarter: 2014Q1

REPORT INFORMATION
  Report Type: Spontaneous
  Country: IT (occurrence: IT)
  Receive Date: 20140210
  Receipt Date: 20140210
  Transmission Date: 20141002
  Serious: Yes (Other)
  Sender: FDA-Public Use
  Company Number: IT-SUN PHARMACEUTICAL INDUSTRIES LTD-2014SUN00241

PATIENT
  Age: 58 Year
  Sex: Female

DRUGS (3)
  1. PANTOPRAZOLO SUN 40 MG POLVERE PER SOLUZIONE INIETTABILE [Suspect]
     Indication: GASTROOESOPHAGEAL REFLUX DISEASE
     Dosage: 40 MG, QD
     Route: 065
  2. OMEPRAZOLE [Suspect]
  3. BISOPROLOL [Concomitant]
     Indication: HYPERTENSION

REACTIONS (3)
  - Hypoparathyroidism [Unknown]
  - Hypomagnesaemia [Recovered/Resolved]
  - Tetany [Recovered/Resolved]
